FAERS Safety Report 9234821 (Version 1)
Quarter: 2013Q2

REPORT INFORMATION
  Report Type: Spontaneous
  Country: US (occurrence: US)
  Receive Date: 20130416
  Receipt Date: 20130416
  Transmission Date: 20140414
  Serious: No
  Sender: FDA-Public Use
  Company Number: US-PFIZER INC-2013113792

PATIENT
  Sex: Female

DRUGS (2)
  1. LEVOXYL [Suspect]
     Dosage: 25 UG, UNK
  2. LEVOTHYROXINE SODIUM [Suspect]
     Dosage: UNK

REACTIONS (4)
  - Extrasystoles [Unknown]
  - Gastrointestinal disorder [Unknown]
  - Asthenia [Unknown]
  - Tachycardia [Unknown]
